FAERS Safety Report 5244051-6 (Version None)
Quarter: 2007Q1

REPORT INFORMATION
  Report Type: 
  Country: None (occurrence: None)
  Receive Date: 20070215
  Receipt Date: 20070202
  Transmission Date: 20070707
  Serious: Yes (Life-Threatening)
  Sender: FDA-Public Use
  Company Number: 011#2#2007-00001

PATIENT
  Sex: Female

DRUGS (2)
  1. ELANTAN-LONG-50 (ISOSORBIDE MONONITRATE) [Suspect]
     Indication: ANGINA PECTORIS
     Dosage: 50 MG (50 MG 1 IN 1 DAY(S)); ORAL
     Route: 048
  2. POTASSIUM CHLORIDE [Concomitant]

REACTIONS (5)
  - DIZZINESS [None]
  - HAEMOGLOBIN DECREASED [None]
  - NAUSEA [None]
  - SHOCK [None]
  - VOMITING [None]
